FAERS Safety Report 15430938 (Version 1)
Quarter: 2018Q3

REPORT INFORMATION
  Report Type: Spontaneous
  Country: US (occurrence: US)
  Receive Date: 20180926
  Receipt Date: 20180926
  Transmission Date: 20181010
  Serious: No
  Sender: FDA-Public Use
  Company Number: US-INDIVIOR LIMITED-INDV-111162-2018

PATIENT
  Age: 44 Year
  Sex: Male

DRUGS (2)
  1. XANAX [Concomitant]
     Active Substance: ALPRAZOLAM
     Indication: DEPRESSION
     Dosage: UNK, TWICE DAILY
     Route: 065
  2. SUBOXONE [Suspect]
     Active Substance: BUPRENORPHINE HYDROCHLORIDE\NALOXONE HYDROCHLORIDE
     Indication: DRUG DEPENDENCE
     Dosage: 8MG, UNK
     Route: 048
     Dates: start: 20180521

REACTIONS (4)
  - Salivary hypersecretion [Unknown]
  - Feeling abnormal [Unknown]
  - Product use issue [Unknown]
  - Tinnitus [Unknown]

NARRATIVE: CASE EVENT DATE: 20180521
